FAERS Safety Report 18743692 (Version 10)
Quarter: 2021Q3

REPORT INFORMATION
  Report Type: Spontaneous
  Country: US (occurrence: US)
  Receive Date: 20210115
  Receipt Date: 20210919
  Transmission Date: 20211014
  Serious: Yes (Hospitalization, Other)
  Sender: FDA-Public Use
  Company Number: US-SA-2021SA010226

PATIENT
  Age: 72 Year
  Sex: Male

DRUGS (6)
  1. CALCIUM [Concomitant]
     Active Substance: CALCIUM
     Dosage: UNK
  2. MIRTAZAPINE. [Concomitant]
     Active Substance: MIRTAZAPINE
     Dosage: 7.5 MG, QD
  3. CAPRELSA [Suspect]
     Active Substance: VANDETANIB
     Indication: THYROID CANCER
     Dosage: 200 MG, QD
     Route: 048
     Dates: start: 20200909
  4. MODERNA COVID?19 VACCINE [Suspect]
     Active Substance: CX-024414
     Indication: COVID-19 IMMUNISATION
     Dosage: UNK
  5. CLINDAMYCIN [CLINDAMYCIN HYDROCHLORIDE] [Concomitant]
     Active Substance: CLINDAMYCIN HYDROCHLORIDE
  6. IRON [Concomitant]
     Active Substance: IRON
     Dosage: UNK

REACTIONS (17)
  - Skin exfoliation [Unknown]
  - Product dose omission issue [Unknown]
  - Depressed mood [Unknown]
  - Joint injury [Recovering/Resolving]
  - Hypertension [Unknown]
  - Multiple fractures [Recovering/Resolving]
  - Hypersensitivity [Unknown]
  - Product administration interrupted [Unknown]
  - Traumatic liver injury [Recovering/Resolving]
  - Pneumothorax [Unknown]
  - Product use issue [Unknown]
  - Diaphragmatic rupture [Recovering/Resolving]
  - Hospitalisation [Unknown]
  - Rash [Unknown]
  - Pruritus [Unknown]
  - Road traffic accident [Recovering/Resolving]
  - Acne [Unknown]

NARRATIVE: CASE EVENT DATE: 202106
